FAERS Safety Report 18427804 (Version 1)
Quarter: 2020Q4

REPORT INFORMATION
  Report Type: Spontaneous
  Country: HR (occurrence: HR)
  Receive Date: 20201026
  Receipt Date: 20201026
  Transmission Date: 20210114
  Serious: Yes (Other)
  Sender: FDA-Public Use
  Company Number: HR-ASTRAZENECA-2020SF36267

PATIENT
  Age: 26 Year
  Sex: Male

DRUGS (3)
  1. SEROQUEL XR [Suspect]
     Active Substance: QUETIAPINE FUMARATE
     Dosage: OVERDOSE, 6 GRAMS, DAILY
     Route: 048
     Dates: start: 20200927, end: 20200927
  2. RIVOTRIL [Suspect]
     Active Substance: CLONAZEPAM
     Dosage: OVERDOSE, 10 TBL
     Route: 048
     Dates: start: 20200927, end: 20200927
  3. PRAZINE (PROMAZINE HYDROCHLORIDE) [Suspect]
     Active Substance: PROMAZINE HYDROCHLORIDE
     Dosage: OVERDOSE, 18 TBL
     Route: 048
     Dates: start: 20200927, end: 20200927

REACTIONS (3)
  - Somnolence [Unknown]
  - Intentional overdose [Unknown]
  - Suicide attempt [Unknown]

NARRATIVE: CASE EVENT DATE: 20200927
